FAERS Safety Report 4295304-X (Version None)
Quarter: 2004Q1

REPORT INFORMATION
  Report Type: 
  Country: None (occurrence: None)
  Receive Date: 20040216
  Receipt Date: 20030528
  Transmission Date: 20041129
  Serious: No
  Sender: FDA-Public Use
  Company Number: US-GLAXOSMITHKLINE-A0410305A

PATIENT
  Age: 49 Year
  Sex: Male

DRUGS (3)
  1. LAMICTAL [Suspect]
     Dosage: 25MG TWICE PER DAY
     Route: 048
     Dates: start: 20030425
  2. ZOLOFT [Concomitant]
  3. COUMADIN [Concomitant]

REACTIONS (3)
  - GASTROINTESTINAL DISORDER [None]
  - HEADACHE [None]
  - RASH ERYTHEMATOUS [None]
